FAERS Safety Report 23040303 (Version 2)
Quarter: 2023Q4

REPORT INFORMATION
  Report Type: Spontaneous
  Country: FR (occurrence: FR)
  Receive Date: 20231006
  Receipt Date: 20231204
  Transmission Date: 20240110
  Serious: Yes (Other)
  Sender: FDA-Public Use
  Company Number: None

PATIENT
  Age: 72 Year
  Sex: Male

DRUGS (7)
  1. CARBOPLATIN [Suspect]
     Active Substance: CARBOPLATIN
     Indication: Oesophageal carcinoma
     Dosage: 200 MG, CYCLIC (CYCLE 1)
     Dates: start: 20230828
  2. FLUOROURACIL [Suspect]
     Active Substance: FLUOROURACIL
     Indication: Oesophageal carcinoma
     Dosage: 950 MG, CYCLIC (CYCLE 1)
     Route: 042
     Dates: start: 20230828
  3. FLUOROURACIL [Suspect]
     Active Substance: FLUOROURACIL
     Dosage: 5650 MG, CYCLIC (CYCLE 1)
     Route: 042
     Dates: start: 20230828
  4. OPDIVO [Suspect]
     Active Substance: NIVOLUMAB
     Indication: Oesophageal carcinoma
     Dosage: 240 MG, CYCLIC (CYCLE 1)
     Dates: start: 20230828
  5. ONDANSETRON [Concomitant]
     Active Substance: ONDANSETRON
     Indication: Prophylaxis
     Route: 042
     Dates: start: 20230828
  6. LEVOLEUCOVORIN CALCIUM [Concomitant]
     Active Substance: LEVOLEUCOVORIN CALCIUM
     Indication: Prophylaxis
  7. METHYLPREDNISOLONE [Concomitant]
     Active Substance: METHYLPREDNISOLONE
     Indication: Prophylaxis
     Dosage: 120 MG, CYCLIC
     Route: 042
     Dates: start: 20230828

REACTIONS (1)
  - Rash maculo-papular [Recovering/Resolving]

NARRATIVE: CASE EVENT DATE: 20230905
